FAERS Safety Report 4596213-9 (Version None)
Quarter: 2005Q1

REPORT INFORMATION
  Report Type: 
  Country: None (occurrence: None)
  Receive Date: 20050225
  Receipt Date: 20050209
  Transmission Date: 20050727
  Serious: Yes (Hospitalization, Other)
  Sender: FDA-Public Use
  Company Number: US-SHR-03-014055

PATIENT
  Age: 65 Year
  Sex: Female
  Weight: 67.1 kg

DRUGS (14)
  1. BETASERON [Suspect]
     Indication: RELAPSING-REMITTING MULTIPLE SCLEROSIS
     Dosage: SEE IMAGE
     Route: 058
     Dates: start: 20000412, end: 20041101
  2. BETASERON [Suspect]
     Indication: RELAPSING-REMITTING MULTIPLE SCLEROSIS
     Dosage: SEE IMAGE
     Route: 058
     Dates: start: 20041201
  3. NEURONTIN [Concomitant]
  4. SYNTHROID [Concomitant]
  5. CAPTOPRIL [Concomitant]
  6. ATENOLOL [Concomitant]
  7. NAPROXEN [Concomitant]
  8. ALLEGRA [Concomitant]
  9. BEXTRA [Concomitant]
  10. NEXIUM [Concomitant]
  11. CLONAZEPAM [Concomitant]
  12. AMITRIP [Concomitant]
  13. NAFTIN (NEFTIFINE HYDROCHORIDE) [Concomitant]
  14. CENTRUM A TO ZINC (MINERALS NOS, VITAMINS NOS) [Concomitant]

REACTIONS (6)
  - APPENDICITIS [None]
  - COLON CANCER [None]
  - COLON CANCER METASTATIC [None]
  - LUNG NEOPLASM [None]
  - METASTASES TO LYMPH NODES [None]
  - WHITE BLOOD CELL COUNT DECREASED [None]
